FAERS Safety Report 7211001-2 (Version None)
Quarter: 2011Q1

REPORT INFORMATION
  Report Type: 
  Country: None (occurrence: None)
  Receive Date: 20110105
  Receipt Date: 20101227
  Transmission Date: 20110831
  Serious: Yes (Other)
  Sender: FDA-Public Use
  Company Number: B0691273A

PATIENT
  Sex: Male

DRUGS (2)
  1. SERETIDE [Suspect]
     Indication: PRODUCT USED FOR UNKNOWN INDICATION
     Route: 055
  2. SPIRIVA [Concomitant]
     Route: 055

REACTIONS (4)
  - VISUAL ACUITY REDUCED [None]
  - ARTHRALGIA [None]
  - STOMATITIS [None]
  - MUSCLE SPASMS [None]
